FAERS Safety Report 4322169-X (Version None)
Quarter: 2004Q1

REPORT INFORMATION
  Report Type: 
  Country: None (occurrence: None)
  Receive Date: 20040319
  Receipt Date: 20040312
  Transmission Date: 20041129
  Serious: Yes (Death)
  Sender: FDA-Public Use
  Company Number: S04-USA-01085-01

PATIENT
  Sex: Male

DRUGS (4)
  1. LEXAPRO [Suspect]
  2. ABILIFY [Suspect]
     Indication: SCHIZOPHRENIA
     Dates: end: 20030801
  3. ABILIFY [Suspect]
     Indication: SCHIZOPHRENIA
  4. ZYPREXA [Concomitant]

REACTIONS (3)
  - COMPLETED SUICIDE [None]
  - DRUG INEFFECTIVE [None]
  - WEIGHT INCREASED [None]
